FAERS Safety Report 16574022 (Version 1)
Quarter: 2019Q3

REPORT INFORMATION
  Report Type: Spontaneous
  Country: US (occurrence: US)
  Receive Date: 20190715
  Receipt Date: 20190715
  Transmission Date: 20191004
  Serious: Yes (Other)
  Sender: FDA-Public Use
  Company Number: US-SHIRE-US201922098

PATIENT
  Age: 29 Year
  Sex: Male

DRUGS (1)
  1. COAGULATION FACTOR VIII (PORCINE, RECOMBINANT) [Suspect]
     Active Substance: ANTIHEMOPHILIC FACTOR PORCINE, B-DOMAIN TRUNCATED RECOMBINANT
     Indication: HAEMOPHILIA
     Dosage: 100 INTERNATIONAL UNIT/KILOGRAM, 2X/DAY:BID
     Route: 065

REACTIONS (2)
  - Factor VIII inhibition [Unknown]
  - Therapeutic product effect decreased [Unknown]
